FAERS Safety Report 19771208 (Version 3)
Quarter: 2021Q3

REPORT INFORMATION
  Report Type: Spontaneous
  Country: DE (occurrence: DE)
  Receive Date: 20210831
  Receipt Date: 20210909
  Transmission Date: 20211014
  Serious: Yes (Hospitalization)
  Sender: FDA-Public Use
  Company Number: DE-CELGENEUS-DEU-20210807947

PATIENT
  Age: 64 Year
  Sex: Female
  Weight: 57 kg

DRUGS (9)
  1. DEXAMYTREX ATR [Concomitant]
     Indication: CONJUNCTIVITIS
     Dosage: 8 MILLIGRAM
     Route: 065
     Dates: start: 20210705, end: 20210719
  2. GRANISETRON [Concomitant]
     Active Substance: GRANISETRON
     Indication: NAUSEA
     Dosage: 2 MILLIGRAM
     Route: 048
     Dates: start: 20210628, end: 20210816
  3. LEVOFLOXACIN. [Concomitant]
     Active Substance: LEVOFLOXACIN
     Indication: ANTIBIOTIC PROPHYLAXIS
     Dosage: 500 MILLIGRAM
     Route: 065
     Dates: start: 20210810
  4. L?THYROXIN [Concomitant]
     Active Substance: LEVOTHYROXINE SODIUM
     Indication: THYROIDECTOMY
     Dosage: 75 MILLIGRAM
     Route: 048
     Dates: start: 20170418
  5. AZACITIDINE. [Suspect]
     Active Substance: AZACITIDINE
     Indication: MYELODYSPLASTIC SYNDROME
     Dosage: 58.7 MILLIGRAM/SQ. METER
     Route: 058
     Dates: start: 20210628
  6. CEFUROXIM [Concomitant]
     Active Substance: CEFUROXIME
     Indication: ANTIBIOTIC PROPHYLAXIS
     Dosage: 1000 MILLIGRAM
     Route: 065
     Dates: start: 20210804, end: 20210810
  7. VENETOCLAX. [Concomitant]
     Active Substance: VENETOCLAX
     Indication: MYELODYSPLASTIC SYNDROME
     Route: 065
  8. POSACONAZOL [Concomitant]
     Active Substance: POSACONAZOLE
     Indication: ANTIFUNGAL PROPHYLAXIS
     Dosage: 300 MILLIGRAM
     Route: 048
     Dates: start: 20210628
  9. MINIRIN [Concomitant]
     Active Substance: DESMOPRESSIN ACETATE
     Indication: DIABETES INSIPIDUS
     Dosage: .15 MILLIGRAM
     Route: 048
     Dates: start: 20170418

REACTIONS (1)
  - Back pain [Not Recovered/Not Resolved]

NARRATIVE: CASE EVENT DATE: 20210815
